FAERS Safety Report 14236044 (Version 2)
Quarter: 2017Q4

REPORT INFORMATION
  Report Type: Spontaneous
  Country: PT (occurrence: PT)
  Receive Date: 20171129
  Receipt Date: 20171211
  Transmission Date: 20180321
  Serious: No
  Sender: FDA-Public Use
  Company Number: US-ASTRAZENECA-2017SF21013

PATIENT
  Age: 442 Day
  Sex: Male
  Weight: 7.5 kg

DRUGS (2)
  1. SYNAGIS [Suspect]
     Active Substance: PALIVIZUMAB
     Indication: LUNG DISORDER
     Dosage: 115.0DF ONCE/SINGLE ADMINISTRATION
     Route: 030
     Dates: start: 20171017, end: 20171017
  2. SYNAGIS [Suspect]
     Active Substance: PALIVIZUMAB
     Indication: LUNG DISORDER
     Dosage: 115.0DF ONCE/SINGLE ADMINISTRATION
     Route: 030
     Dates: start: 20171117, end: 20171117

REACTIONS (3)
  - Dyspnoea [Unknown]
  - Rhinorrhoea [Unknown]
  - Respiratory syncytial virus infection [Recovered/Resolved]

NARRATIVE: CASE EVENT DATE: 20171103
